FAERS Safety Report 10557302 (Version 2)
Quarter: 2014Q4

REPORT INFORMATION
  Report Type: Spontaneous
  Country: US (occurrence: US)
  Receive Date: 20141031
  Receipt Date: 20141125
  Transmission Date: 20150529
  Serious: Yes (Hospitalization, Other)
  Sender: FDA-Public Use
  Company Number: US-INCYTE CORPORATION-2014IN003190

PATIENT
  Age: 79 Year
  Sex: Male

DRUGS (3)
  1. JAKAFI [Suspect]
     Active Substance: RUXOLITINIB
     Dosage: NOT SPECIFIED
     Route: 048
     Dates: end: 201410
  2. JAKAFI [Suspect]
     Active Substance: RUXOLITINIB
     Dosage: 10 MG, QD
     Route: 048
     Dates: start: 201410
  3. JAKAFI [Suspect]
     Active Substance: RUXOLITINIB
     Indication: MYELOFIBROSIS
     Dosage: 10 MG, QD
     Route: 048
     Dates: start: 20140912

REACTIONS (6)
  - Pneumonia [Unknown]
  - Neck pain [Unknown]
  - Lymphadenopathy [Recovered/Resolved]
  - Toothache [Unknown]
  - Pancytopenia [Unknown]
  - Headache [Unknown]

NARRATIVE: CASE EVENT DATE: 20141012
